FAERS Safety Report 5310645-2 (Version None)
Quarter: 2007Q1

REPORT INFORMATION
  Report Type: 
  Country: None (occurrence: None)
  Receive Date: 20070201
  Receipt Date: 20061025
  Transmission Date: 20070707
  Serious: No
  Sender: FDA-Public Use
  Company Number: 258030

PATIENT
  Age: 69 Year
  Sex: Female

DRUGS (14)
  1. LEVEMIR [Suspect]
     Indication: INSULIN-REQUIRING TYPE II DIABETES MELLITUS
     Dosage: SUBCUTANEOUS
     Route: 058
     Dates: start: 20061018
  2. NOVOFINE(R) 31 (NEEDLE) [Concomitant]
  3. ACTOS [Concomitant]
  4. LIMOXIN (AMOXICILLIN TRIHYDRATE) [Concomitant]
  5. ALLEGRA [Concomitant]
  6. LIBRIUM [Concomitant]
  7. CELEBREX [Concomitant]
  8. EFFEXOR [Concomitant]
  9. EVISTA [Concomitant]
  10. FOSAMAX [Concomitant]
  11. METFORMIN HCL [Concomitant]
  12. VERPAMIL (VERAPAMIL HYDROCHLORIDE) [Concomitant]
  13. VALSARTAN [Concomitant]
  14. ASPIRIN [Concomitant]

REACTIONS (2)
  - INJECTION SITE BRUISING [None]
  - INJECTION SITE HAEMORRHAGE [None]
